FAERS Safety Report 24731345 (Version 1)
Quarter: 2024Q4

REPORT INFORMATION
  Report Type: Spontaneous
  Country: US (occurrence: None)
  Receive Date: 20241212
  Receipt Date: 20241212
  Transmission Date: 20250115
  Serious: Yes (unspecified)
  Sender: Public
  Company Number: None

PATIENT
  Age: 56 Year
  Sex: Female
  Weight: 58.5 kg

DRUGS (24)
  1. LEVOFLOXACIN [Suspect]
     Active Substance: LEVOFLOXACIN
     Indication: Mastitis
     Dosage: 10 TABLET(S) ORAL ?
     Route: 048
     Dates: start: 20241121, end: 20241125
  2. LEVOFLOXACIN [Suspect]
     Active Substance: LEVOFLOXACIN
     Indication: Urinary tract infection
  3. TRAMADOL [Concomitant]
     Active Substance: TRAMADOL
  4. CELEXA [Concomitant]
     Active Substance: CITALOPRAM HYDROBROMIDE
  5. LEVOTHYROXINE [Concomitant]
     Active Substance: LEVOTHYROXINE
  6. wellbuyrin [Concomitant]
  7. myrebeyriq [Concomitant]
  8. ELMIRON [Concomitant]
     Active Substance: PENTOSAN POLYSULFATE SODIUM
  9. ESTRADIOL [Concomitant]
     Active Substance: ESTRADIOL
  10. ALBUTEROL [Concomitant]
     Active Substance: ALBUTEROL
  11. protons [Concomitant]
  12. FAMOTIDINE [Concomitant]
     Active Substance: FAMOTIDINE
  13. AMITIZA [Concomitant]
     Active Substance: LUBIPROSTONE
  14. TRELEGY ELLIPTA [Concomitant]
     Active Substance: FLUTICASONE FUROATE\UMECLIDINIUM BROMIDE\VILANTEROL TRIFENATATE
  15. LATANOPROST [Concomitant]
     Active Substance: LATANOPROST
  16. TYLENOL [Concomitant]
     Active Substance: ACETAMINOPHEN
  17. IBUPROFEN [Concomitant]
     Active Substance: IBUPROFEN
  18. FERROUS SULFATE [Concomitant]
     Active Substance: FERROUS SULFATE
  19. ALLEGRA [Concomitant]
     Active Substance: FEXOFENADINE HYDROCHLORIDE
  20. VITAMINS [Concomitant]
     Active Substance: VITAMINS
  21. occuvite [Concomitant]
  22. VITAMIN D3 [Concomitant]
     Active Substance: CHOLECALCIFEROL
  23. Dulcolax [Concomitant]
  24. BENADRYL [Concomitant]
     Active Substance: DIPHENHYDRAMINE HYDROCHLORIDE

REACTIONS (1)
  - Tendonitis [None]

NARRATIVE: CASE EVENT DATE: 20241121
